FAERS Safety Report 8154839-X (Version None)
Quarter: 2012Q1

REPORT INFORMATION
  Report Type: 
  Country: None (occurrence: None)
  Receive Date: 20120221
  Receipt Date: 20120213
  Transmission Date: 20120608
  Serious: Yes (Other)
  Sender: FDA-Public Use
  Company Number: PHEH2011US011761

PATIENT
  Sex: Male
  Weight: 87.8 kg

DRUGS (12)
  1. LYRICA [Concomitant]
     Dosage: 1 DF, BID
     Route: 048
  2. ASPIRIN [Concomitant]
     Dosage: 81 MG, QD
     Route: 048
  3. VIAGRA [Concomitant]
     Dosage: 1 DF, UNK
     Route: 048
  4. TIZANIDINE HCL [Concomitant]
     Dosage: 4 MG, QHS
  5. METHADONE HYDROCHLORIDE [Concomitant]
     Dosage: 1 DF, Q12H
     Route: 048
  6. ACETAMINOPHEN AND HYDROCODONE BITARTRATE [Concomitant]
     Indication: PAIN
     Dosage: 1 DF, PRN (325MG-10 MG)
     Route: 048
  7. DOXAZOSIN MESYLATE [Concomitant]
     Dosage: 1 DF, QD
     Route: 048
  8. GILENYA [Suspect]
     Indication: RELAPSING-REMITTING MULTIPLE SCLEROSIS
     Dosage: 0.5 MG, QD
     Route: 048
     Dates: start: 20110630, end: 20111214
  9. AMITRIPTYLINE HCL [Concomitant]
     Dosage: 2 DF, QHS
  10. MULTI-VITAMIN [Concomitant]
  11. MORPHINE [Concomitant]
     Dosage: 1 DF, BID
     Route: 048
  12. BACLOFEN [Concomitant]
     Dosage: 10 MG, QID
     Route: 048

REACTIONS (36)
  - ELECTROCARDIOGRAM Q WAVE ABNORMAL [None]
  - PULMONARY HYPERTENSION [None]
  - LYMPHOCYTE COUNT DECREASED [None]
  - PNEUMONIA [None]
  - FATIGUE [None]
  - MEMORY IMPAIRMENT [None]
  - DRUG INEFFECTIVE [None]
  - HYPOXIA [None]
  - LOW DENSITY LIPOPROTEIN INCREASED [None]
  - TOTAL LUNG CAPACITY INCREASED [None]
  - BLOOD ALBUMIN DECREASED [None]
  - HEART RATE INCREASED [None]
  - LEFT VENTRICULAR DYSFUNCTION [None]
  - COUGH [None]
  - OEDEMA [None]
  - MUSCULAR WEAKNESS [None]
  - ANXIETY [None]
  - HEADACHE [None]
  - DYSPNOEA [None]
  - GRANULOCYTE COUNT INCREASED [None]
  - DIASTOLIC DYSFUNCTION [None]
  - ELECTROCARDIOGRAM T WAVE INVERSION [None]
  - SPUTUM INCREASED [None]
  - MYOCARDIAL INFARCTION [None]
  - CHEST PAIN [None]
  - TRICUSPID VALVE INCOMPETENCE [None]
  - FORCED EXPIRATORY VOLUME DECREASED [None]
  - DEPRESSION [None]
  - VISUAL IMPAIRMENT [None]
  - CONSTIPATION [None]
  - MEAN CELL HAEMOGLOBIN CONCENTRATION INCREASED [None]
  - MONOCYTE COUNT INCREASED [None]
  - CHEST DISCOMFORT [None]
  - RIGHT VENTRICULAR SYSTOLIC PRESSURE INCREASED [None]
  - CHRONIC OBSTRUCTIVE PULMONARY DISEASE [None]
  - RESPIRATORY DISORDER [None]
